FAERS Safety Report 14505094 (Version 1)
Quarter: 2018Q1

REPORT INFORMATION
  Report Type: Spontaneous
  Country: US (occurrence: US)
  Receive Date: 20180207
  Receipt Date: 20180207
  Transmission Date: 20180509
  Serious: Yes (Hospitalization)
  Sender: FDA-Public Use
  Company Number: None

PATIENT
  Age: 49 Year
  Sex: Male
  Weight: 86 kg

DRUGS (1)
  1. TAMIFLU [Suspect]
     Active Substance: OSELTAMIVIR PHOSPHATE
     Indication: INFLUENZA
     Dates: start: 20180131, end: 20180131

REACTIONS (6)
  - Stridor [None]
  - Respiratory tract oedema [None]
  - Dyspnoea [None]
  - Aphonia [None]
  - Pneumothorax [None]
  - Speech disorder [None]

NARRATIVE: CASE EVENT DATE: 20180131
